FAERS Safety Report 7768665-4 (Version None)
Quarter: 2011Q3

REPORT INFORMATION
  Report Type: 
  Country: None (occurrence: None)
  Receive Date: 20110922
  Receipt Date: 20110125
  Transmission Date: 20111222
  Serious: Yes (Hospitalization)
  Sender: FDA-Public Use
  Company Number: US-ASTRAZENECA-2011SE04655

PATIENT
  Age: 23824 Day
  Sex: Female
  Weight: 48.3 kg

DRUGS (26)
  1. SEROQUEL [Suspect]
     Indication: ANXIETY
     Route: 048
     Dates: start: 20060101
  2. LYRICA [Suspect]
     Indication: RESTLESS LEGS SYNDROME
     Route: 048
     Dates: start: 20100513
  3. METHOCARBAMOL [Suspect]
     Indication: RESTLESS LEGS SYNDROME
     Route: 048
     Dates: start: 20090101
  4. LAMOTRIGINE [Suspect]
     Indication: HALLUCINATION
     Route: 048
     Dates: start: 20100901
  5. CYMBALTA [Suspect]
     Route: 048
     Dates: start: 20100901
  6. PROMETHAZINE [Concomitant]
     Indication: NAUSEA
     Dates: start: 20090101
  7. BENZTROPINE MESYLATE [Suspect]
     Indication: AKATHISIA
     Route: 048
     Dates: start: 20100728
  8. MECLIZINE [Suspect]
     Indication: HALLUCINATION
     Route: 048
     Dates: start: 20100809
  9. LORTAB [Suspect]
     Indication: RHEUMATOID ARTHRITIS
     Dosage: 7.5/500 MG QID
     Route: 048
     Dates: start: 20060101
  10. OMEPRAZOLE [Concomitant]
     Indication: GASTROOESOPHAGEAL REFLUX DISEASE
     Dates: start: 20060101
  11. MECLIZINE [Suspect]
     Indication: AKATHISIA
     Route: 048
     Dates: start: 20100809
  12. SOMA [Suspect]
     Indication: ANXIETY
     Route: 048
     Dates: start: 20100901
  13. LORAZEPAM [Suspect]
     Indication: ANXIETY
     Route: 048
     Dates: start: 20100630, end: 20100901
  14. LORAZEPAM [Suspect]
     Route: 048
     Dates: start: 20100901, end: 20100914
  15. RISPERDAL [Suspect]
     Dates: start: 20100901, end: 20100914
  16. PREDNISONE [Concomitant]
     Indication: RHEUMATOID ARTHRITIS
     Dates: start: 20100112, end: 20100914
  17. FERROUS SULFATE TAB [Concomitant]
     Indication: ANAEMIA
     Dates: start: 20060101
  18. METHOTREXATE SODIUM [Suspect]
     Indication: RHEUMATOID ARTHRITIS
     Dates: start: 20100225, end: 20101116
  19. FOLIC ACID [Concomitant]
     Indication: MEDICAL DIET
     Dosage: 2 MG FOUR TIMES A WEEK
     Dates: start: 20100225
  20. EFFEXOR XR [Suspect]
     Indication: HOT FLUSH
     Route: 048
     Dates: start: 20080101
  21. BENZTROPINE MESYLATE [Suspect]
     Indication: HALLUCINATION
     Route: 048
     Dates: start: 20100728
  22. CYMBALTA [Suspect]
     Indication: ANXIETY
     Route: 048
     Dates: start: 20100701, end: 20100901
  23. ALBUTEROL [Concomitant]
     Indication: RHINITIS SEASONAL
     Dates: start: 20100517
  24. METHOTREXATE SODIUM [Suspect]
     Dosage: 10 MG/WEEK TITRATED TO 20 MG/WEEK
  25. METHOCARBAMOL [Suspect]
     Indication: MUSCLE RELAXANT THERAPY
     Route: 048
     Dates: start: 20090101
  26. LORAZEPAM [Suspect]
     Route: 048
     Dates: start: 20100915

REACTIONS (1)
  - PSYCHOTIC DISORDER [None]
